FAERS Safety Report 23968306 (Version 1)
Quarter: 2024Q2

REPORT INFORMATION
  Report Type: Spontaneous
  Country: US (occurrence: US)
  Receive Date: 20240612
  Receipt Date: 20240612
  Transmission Date: 20240716
  Serious: No
  Sender: FDA-Public Use
  Company Number: US-PERRIGO-24US004469

PATIENT
  Age: 66 Year
  Sex: Female
  Weight: 105.22 kg

DRUGS (5)
  1. DICLOFENAC SODIUM [Suspect]
     Active Substance: DICLOFENAC\DICLOFENAC SODIUM
     Indication: Arthritis
     Dosage: UNKNOWN, 3 TIMES A DAY
     Route: 061
     Dates: start: 20240426, end: 20240506
  2. PREDNISONE [Concomitant]
     Active Substance: PREDNISONE
     Indication: Pain
     Dosage: 20 MG, QD FOR DAYS
     Route: 065
     Dates: start: 20240430, end: 20240504
  3. TYLENOL [Concomitant]
     Active Substance: ACETAMINOPHEN
     Indication: Fibromyalgia
     Dosage: UNK, EVERY 8 HOURS AS NEEDED
     Route: 065
     Dates: start: 1991
  4. ALEVE [Concomitant]
     Active Substance: NAPROXEN SODIUM
     Indication: Fibromyalgia
     Dosage: PRN
     Route: 065
     Dates: start: 1991
  5. MINERALS [Concomitant]
     Active Substance: MINERALS
     Indication: Fibromyalgia
     Dosage: UNK
     Route: 065

REACTIONS (3)
  - Wrong technique in product usage process [Unknown]
  - Incorrect dose administered [Unknown]
  - Product administered at inappropriate site [Unknown]

NARRATIVE: CASE EVENT DATE: 20240426
